FAERS Safety Report 8593238-3 (Version None)
Quarter: 2012Q3

REPORT INFORMATION
  Report Type: 
  Country: None (occurrence: None)
  Receive Date: 20120814
  Receipt Date: 20120809
  Transmission Date: 20120928
  Serious: Yes (Hospitalization)
  Sender: FDA-Public Use
  Company Number: US-AMGEN-USACT2012050366

PATIENT
  Age: 87 Year
  Sex: Female
  Weight: 55.918 kg

DRUGS (9)
  1. DENOSUMAB [Suspect]
     Indication: OSTEOPOROSIS
     Dosage: UNK
     Dates: start: 20110101
  2. CALTRATE +D [Concomitant]
     Dosage: UNK UNK, BID
     Route: 048
  3. HYDROCHLOROTHIAZIDE [Concomitant]
     Dosage: 12.5 MG, QD
     Route: 048
  4. VITAMIN D [Concomitant]
     Dosage: 2000 UNIT, QD
     Route: 048
  5. PROPRANOLOL [Concomitant]
     Dosage: 10 MG, TID
     Route: 048
  6. LIDODERM [Concomitant]
  7. SERTRALINE HYDROCHLORIDE [Concomitant]
     Dosage: 100 MG, UNK
     Route: 048
  8. LEVOTHYROXINE SODIUM [Concomitant]
     Dosage: 112 MUG, UNK
     Route: 048
  9. ZOLPIDEM TARTATE [Concomitant]
     Dosage: 10 MG, UNK
     Route: 048

REACTIONS (1)
  - URINARY TRACT INFECTION [None]
